FAERS Safety Report 5582934-8 (Version None)
Quarter: 2007Q4

REPORT INFORMATION
  Report Type: 
  Country: None (occurrence: None)
  Receive Date: 20071231
  Receipt Date: 20071213
  Transmission Date: 20080405
  Serious: Yes (Hospitalization)
  Sender: FDA-Public Use
  Company Number: PPC200700007

PATIENT
  Age: 28 Year
  Sex: Female
  Weight: 63.5 kg

DRUGS (7)
  1. VANCOMYCIN HYDROCHLORIDE [Suspect]
     Indication: OSTEOMYELITIS
     Dosage: 6 GM (2 GM, 1 IN 8 HR), INTRAVENOUS
     Route: 042
     Dates: start: 20071028, end: 20071114
  2. FERROUS SULFATE TAB [Concomitant]
  3. FOLIC ACID [Concomitant]
  4. ASPIRIN [Concomitant]
  5. TYLENOL ES (PARACETAMOL) [Concomitant]
  6. IBUPROFEN [Concomitant]
  7. LINEZOLID [Concomitant]

REACTIONS (6)
  - ANAEMIA [None]
  - DRUG LEVEL BELOW THERAPEUTIC [None]
  - DRUG TOXICITY [None]
  - NEPHRITIS INTERSTITIAL [None]
  - PYREXIA [None]
  - RENAL FAILURE ACUTE [None]
